FAERS Safety Report 6952444-1 (Version None)
Quarter: 2010Q3

REPORT INFORMATION
  Report Type: 
  Country: None (occurrence: None)
  Receive Date: 20100829
  Receipt Date: 20100506
  Transmission Date: 20110219
  Serious: No
  Sender: FDA-Public Use
  Company Number: US-ABBOTT-10P-163-0642699-00

PATIENT
  Sex: Female

DRUGS (1)
  1. NIASPAN [Suspect]
     Indication: ARTERIOSCLEROSIS
     Dosage: 500MG AT BEDTIME
     Dates: start: 20100406

REACTIONS (1)
  - PRURITUS [None]
